FAERS Safety Report 11860376 (Version 1)
Quarter: 2015Q4

REPORT INFORMATION
  Report Type: Report from Study
  Country: CN (occurrence: CN)
  Receive Date: 20151222
  Receipt Date: 20151222
  Transmission Date: 20160305
  Serious: Yes (Hospitalization)
  Sender: FDA-Public Use
  Company Number: CN-ASTRAZENECA-2015SE99688

PATIENT
  Age: 19976 Day
  Sex: Male

DRUGS (10)
  1. METOPROLOL [Concomitant]
     Active Substance: METOPROLOL
     Indication: CORONARY ARTERY DISEASE
     Route: 048
     Dates: start: 20091201
  2. UBENIMEX [Concomitant]
     Active Substance: UBENIMEX
     Indication: IMMUNE SYSTEM DISORDER
     Route: 048
     Dates: start: 20151007
  3. AZD2281 [Suspect]
     Active Substance: OLAPARIB
     Indication: GASTRIC CANCER
     Route: 048
     Dates: start: 20150929, end: 20151012
  4. AZD2281 [Suspect]
     Active Substance: OLAPARIB
     Indication: GASTRIC CANCER
     Route: 048
     Dates: start: 20151102, end: 20151122
  5. AZD2281 [Suspect]
     Active Substance: OLAPARIB
     Indication: GASTRIC CANCER
     Route: 048
     Dates: start: 20151101, end: 20151101
  6. THYMOSIN [Concomitant]
     Active Substance: THYMOSIN
     Indication: DRUG THERAPY
     Route: 042
     Dates: start: 20151007
  7. AZD2281 [Suspect]
     Active Substance: OLAPARIB
     Indication: GASTRIC CANCER
     Route: 048
     Dates: start: 20151019, end: 20151019
  8. AZD2281 [Suspect]
     Active Substance: OLAPARIB
     Indication: GASTRIC CANCER
     Route: 048
     Dates: start: 20151020, end: 20151031
  9. PACLITAXEL. [Suspect]
     Active Substance: PACLITAXEL
     Indication: GASTRIC CANCER
     Dosage: ON DAY 1,8 AND 15 OF A 28 DAYS CYCLE
     Route: 042
     Dates: start: 20150929, end: 20151109
  10. ATORVASTATIN [Concomitant]
     Active Substance: ATORVASTATIN
     Indication: CORONARY ARTERY DISEASE
     Route: 048
     Dates: start: 20091201

REACTIONS (1)
  - Febrile neutropenia [Recovered/Resolved]

NARRATIVE: CASE EVENT DATE: 20151013
